FAERS Safety Report 5135941-3 (Version None)
Quarter: 2006Q4

REPORT INFORMATION
  Report Type: 
  Country: None (occurrence: None)
  Receive Date: 20061020
  Receipt Date: 20061010
  Transmission Date: 20070319
  Serious: Yes (Life-Threatening)
  Sender: FDA-Public Use
  Company Number: 2006125136

PATIENT
  Age: 48 Year
  Sex: Male

DRUGS (1)
  1. FRAGMIN [Suspect]
     Dosage: 5000 I.U., SUBCUTANEOUS
     Route: 058
     Dates: start: 20060917

REACTIONS (2)
  - POST PROCEDURAL COMPLICATION [None]
  - PULMONARY EMBOLISM [None]
